FAERS Safety Report 21238522 (Version 1)
Quarter: 2022Q3

REPORT INFORMATION
  Report Type: Spontaneous
  Country: US (occurrence: US)
  Receive Date: 20220822
  Receipt Date: 20220822
  Transmission Date: 20221027
  Serious: No
  Sender: FDA-Public Use
  Company Number: US-BAYER-2022A112511

PATIENT
  Age: 31 Year
  Sex: Female

DRUGS (1)
  1. GADOBUTROL [Suspect]
     Active Substance: GADOBUTROL
     Indication: Magnetic resonance imaging head
     Dosage: 10 ML, ONCE
     Dates: start: 20220413

REACTIONS (6)
  - Weight decreased [Recovering/Resolving]
  - Muscle twitching [Recovering/Resolving]
  - Bone pain [Recovering/Resolving]
  - Rash [Recovering/Resolving]
  - Muscle atrophy [Recovering/Resolving]
  - Sinus disorder [Recovering/Resolving]
